FAERS Safety Report 22310906 (Version 2)
Quarter: 2023Q2

REPORT INFORMATION
  Report Type: Spontaneous
  Country: US (occurrence: US)
  Receive Date: 20230511
  Receipt Date: 20230519
  Transmission Date: 20230721
  Serious: Yes (Other)
  Sender: FDA-Public Use
  Company Number: US-APIL-2314119US

PATIENT
  Sex: Female

DRUGS (3)
  1. URSODIOL [Suspect]
     Active Substance: URSODIOL
     Indication: Cholestasis of pregnancy
     Dosage: 500 MG, TID
  2. FENOFIBRATE [Suspect]
     Active Substance: FENOFIBRATE
     Indication: Cholestasis of pregnancy
     Dosage: 160 MG, QD
  3. URSODIOL [Suspect]
     Active Substance: URSODIOL
     Indication: Cholestasis of pregnancy
     Dosage: 300 MG, TID

REACTIONS (7)
  - Abortion induced [Unknown]
  - Breech presentation [Unknown]
  - Premature rupture of membranes [Unknown]
  - Premature delivery [Unknown]
  - Exposure during pregnancy [Unknown]
  - Off label use [Unknown]
  - Drug ineffective for unapproved indication [Unknown]
